FAERS Safety Report 20919742 (Version 7)
Quarter: 2022Q4

REPORT INFORMATION
  Report Type: Spontaneous
  Country: US (occurrence: US)
  Receive Date: 20220606
  Receipt Date: 20221125
  Transmission Date: 20230113
  Serious: Yes (Other)
  Sender: FDA-Public Use
  Company Number: US-BRISTOL-MYERS SQUIBB COMPANY-2022-038471

PATIENT
  Age: 84 Year
  Sex: Male
  Weight: 77.110 kg

DRUGS (6)
  1. POMALYST [Suspect]
     Active Substance: POMALIDOMIDE
     Indication: Plasma cell myeloma
     Route: 048
     Dates: start: 20220502
  2. POMALYST [Suspect]
     Active Substance: POMALIDOMIDE
     Dosage: D 1-21 Q 28 DAYS
     Route: 048
     Dates: start: 20220502
  3. POMALYST [Suspect]
     Active Substance: POMALIDOMIDE
     Dosage: DAILY ON DAYS 1-21 EVERY 28 DAYS
     Route: 048
     Dates: start: 20220502
  4. POMALYST [Suspect]
     Active Substance: POMALIDOMIDE
     Dosage: D1-21 EVERY 28 DAYS.
     Route: 048
     Dates: start: 20220502
  5. POMALYST [Suspect]
     Active Substance: POMALIDOMIDE
     Dosage: DAY 1-21 Q 28 DAYS
     Route: 048
     Dates: start: 20220502
  6. POMALYST [Suspect]
     Active Substance: POMALIDOMIDE
     Dosage: 2MG 14 DAYS ON 14 DAYS OFF (2M DAY 1-14 Q 28 DAY)
     Route: 048
     Dates: start: 20221019

REACTIONS (28)
  - Fatigue [Unknown]
  - Asthenia [Unknown]
  - Dysphonia [Not Recovered/Not Resolved]
  - Dizziness [Not Recovered/Not Resolved]
  - Feeling abnormal [Not Recovered/Not Resolved]
  - Muscle spasms [Not Recovered/Not Resolved]
  - Hiccups [Not Recovered/Not Resolved]
  - Heart rate increased [Not Recovered/Not Resolved]
  - Unevaluable event [Not Recovered/Not Resolved]
  - Adverse event [Recovered/Resolved]
  - Constipation [Not Recovered/Not Resolved]
  - Red blood cell count decreased [Not Recovered/Not Resolved]
  - Anaemia [Not Recovered/Not Resolved]
  - Platelet count decreased [Not Recovered/Not Resolved]
  - Fatigue [Not Recovered/Not Resolved]
  - Neutrophil count [Not Recovered/Not Resolved]
  - Pharyngeal swelling [Not Recovered/Not Resolved]
  - Dysphagia [Not Recovered/Not Resolved]
  - Ageusia [Not Recovered/Not Resolved]
  - Arthralgia [Unknown]
  - Taste disorder [Not Recovered/Not Resolved]
  - Asthenia [Not Recovered/Not Resolved]
  - Dyspnoea [Not Recovered/Not Resolved]
  - Product prescribing issue [Unknown]
  - Off label use [Unknown]
  - Peripheral swelling [Unknown]
  - Oedema peripheral [Unknown]
  - Neutropenia [Unknown]

NARRATIVE: CASE EVENT DATE: 20220502
